FAERS Safety Report 24595896 (Version 1)
Quarter: 2024Q4

REPORT INFORMATION
  Report Type: Spontaneous
  Country: US (occurrence: US)
  Receive Date: 20241109
  Receipt Date: 20241109
  Transmission Date: 20250114
  Serious: Yes (Hospitalization, Other)
  Sender: ALEXION PHARMACEUTICALS
  Company Number: US-ASTRAZENECA-202410USA010622US

PATIENT
  Age: 40 Year
  Weight: 59.002 kg

DRUGS (26)
  1. LOKELMA [Suspect]
     Active Substance: SODIUM ZIRCONIUM CYCLOSILICATE
     Indication: Hyperkalaemia
     Dosage: UNK
  2. LOKELMA [Suspect]
     Active Substance: SODIUM ZIRCONIUM CYCLOSILICATE
     Dosage: UNK
  3. LOKELMA [Suspect]
     Active Substance: SODIUM ZIRCONIUM CYCLOSILICATE
     Dosage: UNK
  4. LOKELMA [Suspect]
     Active Substance: SODIUM ZIRCONIUM CYCLOSILICATE
     Dosage: UNK
  5. JYNARQUE [Suspect]
     Active Substance: TOLVAPTAN
     Indication: Congenital cystic kidney disease
     Dosage: 45 MILLIGRAM
  6. JYNARQUE [Suspect]
     Active Substance: TOLVAPTAN
     Dosage: 45 MILLIGRAM
     Route: 065
  7. JYNARQUE [Suspect]
     Active Substance: TOLVAPTAN
     Dosage: 45 MILLIGRAM
  8. JYNARQUE [Suspect]
     Active Substance: TOLVAPTAN
     Dosage: 45 MILLIGRAM
     Route: 065
  9. JYNARQUE [Suspect]
     Active Substance: TOLVAPTAN
     Dosage: 15 MILLIGRAM
     Route: 065
  10. JYNARQUE [Suspect]
     Active Substance: TOLVAPTAN
     Dosage: 15 MILLIGRAM
  11. JYNARQUE [Suspect]
     Active Substance: TOLVAPTAN
     Dosage: 15 MILLIGRAM
  12. JYNARQUE [Suspect]
     Active Substance: TOLVAPTAN
     Dosage: 15 MILLIGRAM
     Route: 065
  13. JYNARQUE [Suspect]
     Active Substance: TOLVAPTAN
     Dosage: AT A LOWER DOSE
  14. JYNARQUE [Suspect]
     Active Substance: TOLVAPTAN
     Dosage: AT A LOWER DOSE
  15. JYNARQUE [Suspect]
     Active Substance: TOLVAPTAN
     Dosage: UNK
     Route: 065
  16. JYNARQUE [Suspect]
     Active Substance: TOLVAPTAN
     Dosage: UNK
  17. JYNARQUE [Suspect]
     Active Substance: TOLVAPTAN
     Dosage: UNK
     Route: 065
  18. JYNARQUE [Suspect]
     Active Substance: TOLVAPTAN
     Dosage: UNK
  19. LOSARTAN [Suspect]
     Active Substance: LOSARTAN
     Indication: Blood pressure increased
     Dosage: UNK
     Route: 065
  20. LOSARTAN [Suspect]
     Active Substance: LOSARTAN
     Dosage: UNK
  21. LOSARTAN [Suspect]
     Active Substance: LOSARTAN
     Dosage: UNK
     Route: 065
  22. LOSARTAN [Suspect]
     Active Substance: LOSARTAN
     Dosage: UNK
  23. LOSARTAN [Suspect]
     Active Substance: LOSARTAN
     Dosage: THE DOSE OF LOSARTAN WAS DECREASED TO 25 MG
     Route: 065
  24. LOSARTAN [Suspect]
     Active Substance: LOSARTAN
     Dosage: THE DOSE OF LOSARTAN WAS DECREASED TO 25 MG
  25. LOSARTAN [Suspect]
     Active Substance: LOSARTAN
     Dosage: THE DOSE OF LOSARTAN WAS DECREASED TO 25 MG
     Route: 065
  26. LOSARTAN [Suspect]
     Active Substance: LOSARTAN
     Dosage: THE DOSE OF LOSARTAN WAS DECREASED TO 25 MG

REACTIONS (6)
  - Abdominal hernia [Unknown]
  - Abdominal pain [Unknown]
  - Urinary tract infection [Unknown]
  - Hyperkalaemia [Unknown]
  - Laboratory test abnormal [Unknown]
  - Transaminases increased [Not Recovered/Not Resolved]
